FAERS Safety Report 23461705 (Version 1)
Quarter: 2024Q1

REPORT INFORMATION
  Report Type: Spontaneous
  Country: GB (occurrence: GB)
  Receive Date: 20240131
  Receipt Date: 20240131
  Transmission Date: 20240410
  Serious: Yes (Life-Threatening, Hospitalization, Other)
  Sender: FDA-Public Use
  Company Number: GB-PFIZER INC-PV202400012474

PATIENT
  Age: 66 Year
  Sex: Male

DRUGS (6)
  1. SULFASALAZINE [Suspect]
     Active Substance: SULFASALAZINE
     Indication: Rheumatoid arthritis
     Dosage: HIGHER DOSES
  2. SULFASALAZINE [Suspect]
     Active Substance: SULFASALAZINE
     Dosage: DOSE REDUCED
  3. RAMIPRIL [Concomitant]
     Active Substance: RAMIPRIL
     Indication: Hypertension
     Dosage: UNK
  4. METHOTREXATE [Concomitant]
     Active Substance: METHOTREXATE
     Indication: Rheumatoid arthritis
     Dosage: UNK, WEEKLY MAINTENANCE
     Route: 048
  5. METHOTREXATE [Concomitant]
     Active Substance: METHOTREXATE
     Dosage: UNK (SUBCUTANEOUS INJECTIONS)
     Route: 058
  6. FOLIC ACID [Concomitant]
     Active Substance: FOLIC ACID
     Indication: Nausea
     Dosage: DOSE INCREASED

REACTIONS (4)
  - Nausea [Unknown]
  - Vomiting [Unknown]
  - Drug intolerance [Unknown]
  - Drug ineffective [Unknown]
